FAERS Safety Report 9697868 (Version 1)
Quarter: 2013Q4

REPORT INFORMATION
  Report Type: Spontaneous
  Country: DE (occurrence: DE)
  Receive Date: 20131120
  Receipt Date: 20131120
  Transmission Date: 20140711
  Serious: Yes (Hospitalization)
  Sender: FDA-Public Use
  Company Number: DE-009507513-1311DEU006783

PATIENT
  Sex: Female

DRUGS (1)
  1. NUVARING [Suspect]
     Dosage: UNK
     Route: 067
     Dates: start: 2013, end: 2013

REACTIONS (5)
  - Pyelonephritis [Recovered/Resolved]
  - Mood swings [Recovered/Resolved]
  - Headache [Recovered/Resolved]
  - Breast pain [Recovered/Resolved]
  - Abdominal pain lower [Recovered/Resolved]
